FAERS Safety Report 9553446 (Version 1)
Quarter: 2013Q3

REPORT INFORMATION
  Report Type: Spontaneous
  Country: US (occurrence: US)
  Receive Date: 20130925
  Receipt Date: 20130925
  Transmission Date: 20140515
  Serious: Yes (Other)
  Sender: FDA-Public Use
  Company Number: US-PFIZER INC-2013274992

PATIENT
  Age: 74 Year
  Sex: Female
  Weight: 54.42 kg

DRUGS (2)
  1. LIPITOR [Suspect]
     Indication: BLOOD CHOLESTEROL INCREASED
     Dosage: UNK
  2. LISINOPRIL [Concomitant]
     Indication: HYPERTENSION
     Dosage: 40 MG, THREE TIMES A DAY

REACTIONS (1)
  - Macular degeneration [Unknown]
